FAERS Safety Report 5152216-7 (Version None)
Quarter: 2006Q4

REPORT INFORMATION
  Report Type: 
  Country: None (occurrence: None)
  Receive Date: 20061109
  Receipt Date: 20061027
  Transmission Date: 20070319
  Serious: Yes (Other)
  Sender: FDA-Public Use
  Company Number: 15078

PATIENT
  Age: 61 Year
  Sex: Male

DRUGS (2)
  1. AMIODARONE HCL [Suspect]
     Indication: VENTRICULAR FIBRILLATION
     Dosage: 900 MG FREQ; UNK; IV
     Route: 042
  2. AMIODARONE HCL [Suspect]
     Indication: VENTRICULAR FIBRILLATION
     Dosage: 300 MG, FREQ, UNK; IV
     Route: 042

REACTIONS (3)
  - EXTRAVASATION [None]
  - INJECTION SITE REACTION [None]
  - SKIN NECROSIS [None]
